FAERS Safety Report 6312750-0 (Version None)
Quarter: 2009Q3

REPORT INFORMATION
  Report Type: 
  Country: None (occurrence: None)
  Receive Date: 20090817
  Receipt Date: 20090817
  Transmission Date: 20100115
  Serious: Yes (Other)
  Sender: FDA-Public Use
  Company Number: None

PATIENT
  Sex: Female
  Weight: 49.8957 kg

DRUGS (1)
  1. CRESTOR [Suspect]
     Indication: BLOOD CHOLESTEROL
     Dosage: 10 MG 1X DAY ORAL
     Route: 048
     Dates: start: 20060101

REACTIONS (8)
  - ABDOMINAL PAIN UPPER [None]
  - DIZZINESS [None]
  - DRUG INEFFECTIVE [None]
  - DYSPHONIA [None]
  - MUSCLE SPASMS [None]
  - MUSCULAR WEAKNESS [None]
  - PHARYNGEAL OEDEMA [None]
  - PRURITUS [None]
